FAERS Safety Report 11201637 (Version 1)
Quarter: 2015Q2

REPORT INFORMATION
  Report Type: Spontaneous
  Country: US (occurrence: None)
  Receive Date: 20150617
  Receipt Date: 20150617
  Transmission Date: 20150821
  Serious: Yes (Life-Threatening)
  Sender: FDA-Public Use
  Company Number: None

PATIENT
  Age: 58 Year
  Sex: Female
  Weight: 78.47 kg

DRUGS (1)
  1. CYCLOPHOSPHAMIDE. [Suspect]
     Active Substance: CYCLOPHOSPHAMIDE
     Indication: BREAST CANCER
     Route: 042
     Dates: start: 20150129, end: 20150522

REACTIONS (6)
  - Blood pressure decreased [None]
  - Vomiting [None]
  - Abdominal pain [None]
  - Unevaluable event [None]
  - Depressed level of consciousness [None]
  - Oxygen saturation decreased [None]
